FAERS Safety Report 6570927-3 (Version None)
Quarter: 2010Q1

REPORT INFORMATION
  Report Type: 
  Country: None (occurrence: None)
  Receive Date: 20100203
  Receipt Date: 20100203
  Transmission Date: 20100710
  Serious: Yes (Hospitalization)
  Sender: FDA-Public Use
  Company Number: None

PATIENT
  Sex: Male
  Weight: 80 kg

DRUGS (16)
  1. CISPLATIN [Suspect]
     Dosage: 242.5 MG
     Dates: end: 20100120
  2. TAXOL [Suspect]
  3. ASPIRIN [Concomitant]
  4. LORAZEPAM [Concomitant]
  5. ONDANSETRON [Concomitant]
  6. TELMISARTAN/HYDROCHLOROTHIAZIDE [Concomitant]
  7. CLOPIDOGREL [Concomitant]
  8. DEXAMETHASONE TAB [Concomitant]
  9. DOCUSATE [Concomitant]
  10. FISH OIL OMEGA3 FATTY ACIS [Concomitant]
  11. PANTOPRAZOLE [Concomitant]
  12. POLYETHYLENE GYLCOL [Concomitant]
  13. POTASSIUM CHLORIDE [Concomitant]
  14. PRAVASTATIN [Concomitant]
  15. PROCHLORPERAZINE [Concomitant]
  16. SUCRALFATE [Concomitant]

REACTIONS (3)
  - DYSPHAGIA [None]
  - NEUTROPENIA [None]
  - OESOPHAGITIS [None]
